FAERS Safety Report 21219894 (Version 3)
Quarter: 2022Q3

REPORT INFORMATION
  Report Type: Spontaneous
  Country: US (occurrence: US)
  Receive Date: 20220817
  Receipt Date: 20220930
  Transmission Date: 20221027
  Serious: No
  Sender: FDA-Public Use
  Company Number: US-SANOFI-01232811

PATIENT
  Sex: Female

DRUGS (1)
  1. ALLEGRA ALLERGY [Suspect]
     Active Substance: FEXOFENADINE HYDROCHLORIDE
     Dosage: UNK
     Dates: start: 20220812

REACTIONS (2)
  - Drug ineffective [Unknown]
  - Product colour issue [Unknown]

NARRATIVE: CASE EVENT DATE: 20220812
